FAERS Safety Report 7280637-5 (Version None)
Quarter: 2011Q1

REPORT INFORMATION
  Report Type: 
  Country: None (occurrence: None)
  Receive Date: 20110208
  Receipt Date: 20110204
  Transmission Date: 20110831
  Serious: Yes (Death)
  Sender: FDA-Public Use
  Company Number: A0777847A

PATIENT
  Age: 69 Year
  Sex: Male
  Weight: 90.9 kg

DRUGS (9)
  1. GLUCOTROL [Concomitant]
     Dates: end: 20070214
  2. SPIRONOLACTONE [Concomitant]
     Dates: start: 20060809, end: 20070214
  3. LABETALOL HCL [Concomitant]
     Dates: end: 20070214
  4. ZETIA [Concomitant]
     Dates: end: 20070214
  5. LIPITOR [Concomitant]
     Dates: end: 20070214
  6. AVANDIA [Suspect]
     Dosage: 4MG PER DAY
     Route: 048
     Dates: start: 20060206, end: 20070214
  7. FUROSEMIDE [Concomitant]
     Dates: start: 20060106, end: 20070214
  8. ADVAIR [Concomitant]
     Dates: start: 20061221, end: 20070214
  9. NIASPAN [Concomitant]
     Dates: end: 20070214

REACTIONS (7)
  - ATRIAL FIBRILLATION [None]
  - CARDIAC ARREST [None]
  - SLEEP APNOEA SYNDROME [None]
  - DIABETES MELLITUS [None]
  - CORONARY ARTERY DISEASE [None]
  - MYOCARDIAL INFARCTION [None]
  - ARTERIOSCLEROSIS [None]
